FAERS Safety Report 18425324 (Version 2)
Quarter: 2020Q4

REPORT INFORMATION
  Report Type: Spontaneous
  Country: JP (occurrence: JP)
  Receive Date: 20201026
  Receipt Date: 20201110
  Transmission Date: 20210114
  Serious: Yes (Other)
  Sender: FDA-Public Use
  Company Number: JP-ASTELLAS-2020JP014775

PATIENT
  Age: 71 Year
  Sex: Male

DRUGS (1)
  1. PROGRAF [Suspect]
     Active Substance: TACROLIMUS
     Indication: BONE MARROW TRANSPLANT REJECTION
     Dosage: 0.2 MG, ONCE DAILY
     Route: 065
     Dates: end: 20200928

REACTIONS (3)
  - Renal disorder [Not Recovered/Not Resolved]
  - Hepatic failure [Unknown]
  - Thrombotic microangiopathy [Not Recovered/Not Resolved]
